FAERS Safety Report 20193383 (Version 2)
Quarter: 2022Q1

REPORT INFORMATION
  Report Type: Spontaneous
  Country: US (occurrence: US)
  Receive Date: 20211216
  Receipt Date: 20220114
  Transmission Date: 20220423
  Serious: No
  Sender: FDA-Public Use
  Company Number: US-ALKERMES INC.-ALK-2021-006400

PATIENT
  Sex: Male

DRUGS (2)
  1. VIVITROL [Suspect]
     Active Substance: NALTREXONE
     Indication: Alcoholism
     Dosage: 380 MILLIGRAM, QMO
     Route: 030
     Dates: start: 20200107
  2. VIVITROL [Suspect]
     Active Substance: NALTREXONE
     Indication: Substance-induced mood disorder

REACTIONS (2)
  - Limb injury [Unknown]
  - Product administered at inappropriate site [Unknown]
